FAERS Safety Report 24900453 (Version 1)
Quarter: 2025Q1

REPORT INFORMATION
  Report Type: Spontaneous
  Country: US (occurrence: None)
  Receive Date: 20250129
  Receipt Date: 20250129
  Transmission Date: 20250408
  Serious: Yes (Hospitalization)
  Sender: FDA-CTU
  Company Number: None

PATIENT
  Age: 89 Year
  Sex: Female

DRUGS (12)
  1. LENALIDOMIDE [Suspect]
     Active Substance: LENALIDOMIDE
     Indication: Non-Hodgkin^s lymphoma
     Route: 048
  2. PORT MORRIS DISTILLERY HAND SANITIZER [Suspect]
     Active Substance: ALCOHOL
  3. ACETAMINOPHE [Concomitant]
  4. ACYCLOVIR [Concomitant]
     Active Substance: ACYCLOVIR
  5. ASPIRIN [Concomitant]
     Active Substance: ASPIRIN
  6. CALCIUM PLUS [Concomitant]
  7. FERROUS SULFATE [Concomitant]
     Active Substance: FERROUS SULFATE
  8. FEXOFENADINE HYDROCHLORIDE [Concomitant]
     Active Substance: FEXOFENADINE HYDROCHLORIDE
  9. FUROSEMIDE [Concomitant]
     Active Substance: FUROSEMIDE
  10. PRESERVISION CAP AREDS 2 [Concomitant]
  11. ROPINIROLE [Concomitant]
     Active Substance: ROPINIROLE
  12. VITAMIN B-12 TAB 1000MCG [Concomitant]

REACTIONS (1)
  - Device related infection [None]

NARRATIVE: CASE EVENT DATE: 20240101
